FAERS Safety Report 23946825 (Version 1)
Quarter: 2024Q2

REPORT INFORMATION
  Report Type: Spontaneous
  Country: US (occurrence: US)
  Receive Date: 20240606
  Receipt Date: 20240606
  Transmission Date: 20240715
  Serious: Yes (Other)
  Sender: FDA-Public Use
  Company Number: US-TEVA-VS-3202897

PATIENT
  Age: 23 Year
  Sex: Female

DRUGS (2)
  1. DOXYCYCLINE [Suspect]
     Active Substance: DOXYCYCLINE\DOXYCYCLINE HYCLATE
     Indication: Product used for unknown indication
     Route: 065
  2. LUPKYNIS [Suspect]
     Active Substance: VOCLOSPORIN
     Indication: Lupus nephritis
     Route: 048
     Dates: start: 20220118

REACTIONS (6)
  - Vaginal haemorrhage [Unknown]
  - Anorectal disorder [Unknown]
  - Bartholin^s cyst [Unknown]
  - Vitamin D deficiency [Unknown]
  - Migraine [Unknown]
  - Product dose omission issue [Unknown]
